FAERS Safety Report 5057459-9 (Version None)
Quarter: 2006Q3

REPORT INFORMATION
  Report Type: 
  Country: None (occurrence: None)
  Receive Date: 20060721
  Receipt Date: 20051012
  Transmission Date: 20061208
  Serious: No
  Sender: FDA-Public Use
  Company Number: US-GLAXOSMITHKLINE-A0578018A

PATIENT
  Age: 63 Year
  Sex: Female

DRUGS (8)
  1. AVANDIA [Suspect]
     Dosage: 4MG TWICE PER DAY
     Route: 048
     Dates: start: 20000101, end: 20050101
  2. WELLBUTRIN XL [Concomitant]
  3. GLUCOPHAGE [Concomitant]
  4. MONOPRIL [Concomitant]
  5. SINGULAIR [Concomitant]
  6. TOPAMAX [Concomitant]
  7. PROTONIX [Concomitant]
  8. ZYRTEC [Concomitant]

REACTIONS (1)
  - WEIGHT LOSS POOR [None]
